FAERS Safety Report 15268389 (Version 1)
Quarter: 2018Q3

REPORT INFORMATION
  Report Type: Spontaneous
  Country: US (occurrence: US)
  Receive Date: 20180726
  Receipt Date: 20180726
  Transmission Date: 20181010
  Serious: Yes (Disabling)
  Sender: FDA-Public Use
  Company Number: None

PATIENT
  Age: 45 Year
  Sex: Female

DRUGS (1)
  1. BOTOX [Suspect]
     Active Substance: ONABOTULINUMTOXINA
     Indication: MIGRAINE
     Dates: start: 20180725, end: 20180725

REACTIONS (9)
  - Headache [None]
  - Fatigue [None]
  - Lethargy [None]
  - Musculoskeletal stiffness [None]
  - Hypoaesthesia [None]
  - Nausea [None]
  - Pain [None]
  - Vomiting [None]
  - Eyelid disorder [None]

NARRATIVE: CASE EVENT DATE: 20180725
